FAERS Safety Report 15022637 (Version 4)
Quarter: 2018Q3

REPORT INFORMATION
  Report Type: Spontaneous
  Country: DE (occurrence: DE)
  Receive Date: 20180618
  Receipt Date: 20180918
  Transmission Date: 20181010
  Serious: Yes (Hospitalization, Other)
  Sender: FDA-Public Use
  Company Number: DE-AMGEN-DEUSP2018079496

PATIENT
  Age: 63 Year
  Sex: Female
  Weight: 47.2 kg

DRUGS (11)
  1. LYRICA [Concomitant]
     Active Substance: PREGABALIN
     Dosage: 50 MG, UNK
  2. NEBIVOLOL. [Concomitant]
     Active Substance: NEBIVOLOL
     Dosage: 5 MG (1/2 IN MORNINIG), QD
  3. TRAMAL [Concomitant]
     Active Substance: TRAMADOL
     Dosage: UNK UNK, AS NECESSARY
  4. LIMPTAR N [Concomitant]
     Dosage: 1 DF IN MORNING, QD
  5. CANDESARTAN. [Concomitant]
     Active Substance: CANDESARTAN
     Dosage: 32 MG (IN MORNING), QD
  6. AMLODIPINE [Concomitant]
     Active Substance: AMLODIPINE BESYLATE
     Indication: HYPERTENSION
     Dosage: 5 MG (IN MORNING), QD
  7. NORSPAN [Concomitant]
     Active Substance: BUPRENORPHINE
     Dosage: 30 MUG, UNK
  8. PANTOZOL [Concomitant]
     Active Substance: PANTOPRAZOLE SODIUM
     Dosage: 40 MG (IN MORNING), QD
  9. PROLIA [Suspect]
     Active Substance: DENOSUMAB
     Indication: OSTEOPOROSIS POSTMENOPAUSAL
     Dosage: 60 MG, Q6MO
     Route: 058
     Dates: start: 20150323, end: 20170509
  10. VERSATIS [Concomitant]
     Active Substance: LIDOCAINE
     Dosage: 5 % (1 DF IN MORNING), QD
  11. L?THYROXIN [Concomitant]
     Active Substance: LEVOTHYROXINE SODIUM
     Indication: HYPOTHYROIDISM
     Dosage: 25 MUG, UNK

REACTIONS (16)
  - Lumbar vertebral fracture [Unknown]
  - Vertigo positional [Unknown]
  - Aortic disorder [Unknown]
  - Thoracic vertebral fracture [Unknown]
  - Spinal compression fracture [Not Recovered/Not Resolved]
  - Tooth disorder [Unknown]
  - Spinal osteoarthritis [Unknown]
  - Pain in jaw [Not Recovered/Not Resolved]
  - General physical health deterioration [Recovered/Resolved]
  - Vomiting [Unknown]
  - Dysphagia [Not Recovered/Not Resolved]
  - Vitamin D deficiency [Not Recovered/Not Resolved]
  - Kyphosis [Not Recovered/Not Resolved]
  - B-cell lymphoma [Not Recovered/Not Resolved]
  - Mobility decreased [Not Recovered/Not Resolved]
  - Nausea [Not Recovered/Not Resolved]

NARRATIVE: CASE EVENT DATE: 201706
